FAERS Safety Report 24275538 (Version 3)
Quarter: 2024Q4

REPORT INFORMATION
  Report Type: Report from Study
  Country: CA (occurrence: CA)
  Receive Date: 20240903
  Receipt Date: 20241028
  Transmission Date: 20250115
  Serious: Yes (Other)
  Sender: SANDOZ
  Company Number: CA-SANDOZ-SDZ2024CA034463

PATIENT
  Age: 76 Year
  Sex: Male

DRUGS (1)
  1. ERELZI [Suspect]
     Active Substance: ETANERCEPT-SZZS
     Indication: Rheumatoid arthritis
     Dosage: 50 MG, QW
     Route: 058
     Dates: start: 20231227

REACTIONS (10)
  - Vascular operation [Recovering/Resolving]
  - Sensory loss [Unknown]
  - Hypoaesthesia [Unknown]
  - Pain in extremity [Unknown]
  - Sleep disorder [Unknown]
  - Dry skin [Unknown]
  - Drug interaction [Unknown]
  - Fatigue [Unknown]
  - Urinary tract infection [Not Recovered/Not Resolved]
  - Rash [Unknown]

NARRATIVE: CASE EVENT DATE: 20240301
